FAERS Safety Report 7850515-9 (Version None)
Quarter: 2011Q4

REPORT INFORMATION
  Report Type: 
  Country: None (occurrence: None)
  Receive Date: 20111026
  Receipt Date: 20111026
  Transmission Date: 20120403
  Serious: No
  Sender: FDA-Public Use
  Company Number: None

PATIENT
  Sex: Female
  Weight: 90.718 kg

DRUGS (1)
  1. ERTAPENEM [Suspect]
     Indication: APPENDICITIS
     Dosage: 1000MG
     Route: 041
     Dates: start: 20110930, end: 20111006

REACTIONS (1)
  - RASH [None]
